FAERS Safety Report 22665872 (Version 2)
Quarter: 2023Q4

REPORT INFORMATION
  Report Type: Spontaneous
  Country: US (occurrence: US)
  Receive Date: 20230703
  Receipt Date: 20231110
  Transmission Date: 20240109
  Serious: Yes (Hospitalization)
  Sender: FDA-Public Use
  Company Number: US-CYCLE PHARMACEUTICALS LTD-2023-CYC-000034

PATIENT

DRUGS (5)
  1. NITYR [Suspect]
     Active Substance: NITISINONE
     Indication: Amino acid metabolism disorder
     Dosage: 2 MG AND 10 MG TABLET, 14 MG, BID
     Route: 048
  2. NITYR [Suspect]
     Active Substance: NITISINONE
     Dosage: TAKE THREE 2 MG TABLETS (6 MG TOTAL) AND TWO 10 MG TABLETS (20 MG TOTAL)
     Route: 048
  3. NITYR [Suspect]
     Active Substance: NITISINONE
     Indication: Amino acid metabolism disorder
     Dosage: 2 MG AND 10 MG TABLET, 14 MG, BID
     Route: 048
  4. NITYR [Suspect]
     Active Substance: NITISINONE
     Dosage: TAKE THREE 2 MG TABLETS (6 MG TOTAL) AND TWO 10 MG TABLETS (20 MG TOTAL)
     Route: 048
  5. BUPRENORPHINE [Concomitant]
     Active Substance: BUPRENORPHINE
     Indication: Product used for unknown indication
     Dosage: 15 MCG/HR, PATCH TDWK
     Route: 062

REACTIONS (2)
  - Hospitalisation [Unknown]
  - Product use issue [Unknown]
